FAERS Safety Report 21804763 (Version 1)
Quarter: 2023Q1

REPORT INFORMATION
  Report Type: Spontaneous
  Country: US (occurrence: US)
  Receive Date: 20230102
  Receipt Date: 20230102
  Transmission Date: 20230417
  Serious: No
  Sender: FDA-Public Use
  Company Number: US-GSK-US2022193044

PATIENT
  Age: 78 Year
  Sex: Female

DRUGS (1)
  1. TRELEGY ELLIPTA [Suspect]
     Active Substance: FLUTICASONE FUROATE\UMECLIDINIUM BROMIDE\VILANTEROL TRIFENATATE
     Indication: Chronic obstructive pulmonary disease
     Dosage: 1 PUFF(S), QD 100-62.5-25MCG USE 1 INHALATION BY MOUTH ONCE DAILY AT THE SAME TIME EACH DAY
     Route: 055
     Dates: start: 201901, end: 20221220

REACTIONS (2)
  - Dyspnoea [Unknown]
  - Product use issue [Not Recovered/Not Resolved]

NARRATIVE: CASE EVENT DATE: 20221220
